FAERS Safety Report 6671561-7 (Version None)
Quarter: 2010Q2

REPORT INFORMATION
  Report Type: 
  Country: None (occurrence: None)
  Receive Date: 20100406
  Receipt Date: 20100406
  Transmission Date: 20101027
  Serious: Yes (Hospitalization)
  Sender: FDA-Public Use
  Company Number: None

PATIENT
  Age: 45 Year
  Sex: Female
  Weight: 64 kg

DRUGS (1)
  1. VENOFER [Suspect]
     Indication: ANAEMIA
     Dosage: 800 MG ONCE IV DRIP
     Route: 041
     Dates: start: 20100331, end: 20100331

REACTIONS (5)
  - ABDOMINAL PAIN [None]
  - DIZZINESS [None]
  - HYPERHIDROSIS [None]
  - OEDEMA PERIPHERAL [None]
  - TACHYCARDIA [None]
